FAERS Safety Report 6698991-1 (Version None)
Quarter: 2010Q2

REPORT INFORMATION
  Report Type: 
  Country: None (occurrence: None)
  Receive Date: 20100427
  Receipt Date: 20100421
  Transmission Date: 20101027
  Serious: Yes (Hospitalization, Disabling, Other)
  Sender: FDA-Public Use
  Company Number: DE-BAYER-201022901GPV

PATIENT
  Sex: Female

DRUGS (2)
  1. AVELOX [Suspect]
     Indication: WOUND INFECTION
     Route: 065
  2. CIPROFLOXACIN [Suspect]
     Indication: WOUND INFECTION
     Route: 065

REACTIONS (2)
  - LIMB OPERATION [None]
  - WOUND INFECTION [None]
